FAERS Safety Report 24560197 (Version 1)
Quarter: 2024Q4

REPORT INFORMATION
  Report Type: Report from Study
  Country: CA (occurrence: CA)
  Receive Date: 20241029
  Receipt Date: 20241029
  Transmission Date: 20250114
  Serious: Yes (Other)
  Sender: JOHNSON AND JOHNSON
  Company Number: CA-JNJFOC-20240976723

PATIENT
  Age: 54 Year
  Sex: Male
  Weight: 108.96 kg

DRUGS (3)
  1. STELARA [Suspect]
     Active Substance: USTEKINUMAB
     Indication: Colitis ulcerative
     Route: 058
     Dates: start: 20211020
  2. STELARA [Suspect]
     Active Substance: USTEKINUMAB
     Route: 040
     Dates: start: 20241021
  3. STELARA [Suspect]
     Active Substance: USTEKINUMAB
     Route: 058

REACTIONS (4)
  - Haemorrhage [Recovered/Resolved]
  - Inflammation [Unknown]
  - Frequent bowel movements [Recovered/Resolved]
  - Off label use [Unknown]

NARRATIVE: CASE EVENT DATE: 20240923
